FAERS Safety Report 5000952-5 (Version None)
Quarter: 2006Q2

REPORT INFORMATION
  Report Type: 
  Country: None (occurrence: None)
  Receive Date: 20060512
  Receipt Date: 20060503
  Transmission Date: 20061013
  Serious: Yes (Hospitalization)
  Sender: FDA-Public Use
  Company Number: FR-SANOFI-SYNTHELABO-F01200601162

PATIENT
  Sex: Male

DRUGS (4)
  1. OXALIPLATIN [Suspect]
     Indication: COLORECTAL CANCER
     Route: 042
     Dates: start: 20060502, end: 20060502
  2. FLUOROURACIL [Suspect]
     Route: 042
     Dates: start: 20060502, end: 20060503
  3. ELVORINE [Suspect]
     Route: 042
     Dates: start: 20060502, end: 20060502
  4. VENTOLIN [Concomitant]
     Indication: ASTHMA
     Dosage: UNK
     Route: 065

REACTIONS (1)
  - LARYNGOSPASM [None]
